FAERS Safety Report 4700530-9 (Version None)
Quarter: 2005Q2

REPORT INFORMATION
  Report Type: 
  Country: None (occurrence: None)
  Receive Date: 20050627
  Receipt Date: 20050627
  Transmission Date: 20051028
  Serious: No
  Sender: FDA-Public Use
  Company Number: None

PATIENT
  Age: 51 Year
  Sex: Female
  Weight: 69.8539 kg

DRUGS (1)
  1. FLUOXETINE [Suspect]
     Indication: ANXIETY
     Dosage: 20MG     1X DAILY   ORAL
     Route: 048
     Dates: start: 20040501, end: 20040930

REACTIONS (4)
  - ARTHRALGIA [None]
  - ARTHROPATHY [None]
  - JOINT STIFFNESS [None]
  - SHOULDER PAIN [None]
